FAERS Safety Report 23584740 (Version 1)
Quarter: 2024Q1

REPORT INFORMATION
  Report Type: Spontaneous
  Country: GB (occurrence: GB)
  Receive Date: 20240301
  Receipt Date: 20240301
  Transmission Date: 20240410
  Serious: Yes (Other)
  Sender: FDA-Public Use
  Company Number: GB-MHRA-MED-202402151251147430-LPCKG

PATIENT
  Age: 59 Year
  Sex: Female
  Weight: 65 kg

DRUGS (2)
  1. PAROXETINE [Suspect]
     Active Substance: PAROXETINE
     Indication: Depression
     Dosage: UNK
     Route: 065
  2. COCODAMOL [Concomitant]
     Active Substance: ACETAMINOPHEN\CODEINE PHOSPHATE
     Indication: Arthralgia
     Dosage: UNK
     Route: 065
     Dates: start: 20160801

REACTIONS (7)
  - Sinus tachycardia [Recovering/Resolving]
  - Malaise [Recovered/Resolved]
  - Hypertension [Recovering/Resolving]
  - Flushing [Recovering/Resolving]
  - Muscle spasms [Recovered/Resolved]
  - Chills [Recovered/Resolved]
  - Anxiety [Recovering/Resolving]

NARRATIVE: CASE EVENT DATE: 20240107
